FAERS Safety Report 11827007 (Version 1)
Quarter: 2015Q4

REPORT INFORMATION
  Report Type: Spontaneous
  Country: US (occurrence: US)
  Receive Date: 20151211
  Receipt Date: 20151211
  Transmission Date: 20160305
  Serious: Yes (Hospitalization)
  Sender: FDA-Public Use
  Company Number: US-ASTRAZENECA-2015SE35561

PATIENT
  Sex: Female
  Weight: 10 kg

DRUGS (3)
  1. SYNAGIS [Suspect]
     Active Substance: PALIVIZUMAB
     Indication: ANTIVIRAL PROPHYLAXIS
     Dosage: 15MG/KG MONTHLY
     Route: 030
     Dates: start: 201410
  2. SYNAGIS [Suspect]
     Active Substance: PALIVIZUMAB
     Indication: RESPIRATORY TRACT MALFORMATION
     Dosage: 15MG/KG MONTHLY
     Route: 030
     Dates: start: 201410
  3. SYNAGIS [Suspect]
     Active Substance: PALIVIZUMAB
     Indication: PREMATURE BABY
     Dosage: 15MG/KG MONTHLY
     Route: 030
     Dates: start: 201410

REACTIONS (3)
  - Pneumonia [Unknown]
  - Rhinorrhoea [Unknown]
  - Increased upper airway secretion [Unknown]
